FAERS Safety Report 7366222-5 (Version None)
Quarter: 2011Q1

REPORT INFORMATION
  Report Type: 
  Country: None (occurrence: None)
  Receive Date: 20110309
  Receipt Date: 20110224
  Transmission Date: 20110831
  Serious: Yes (Hospitalization, Other)
  Sender: FDA-Public Use
  Company Number: 028222

PATIENT
  Age: 11 Year
  Sex: Male

DRUGS (2)
  1. LACOSAMIDE [Suspect]
     Indication: CONVULSION
     Dosage: 200 MG, 150MG AM/ 100 MG PM ORAL
     Route: 048
  2. CLOBAZAM [Concomitant]

REACTIONS (2)
  - THROAT IRRITATION [None]
  - VOCAL CORD PARALYSIS [None]
